FAERS Safety Report 6443479-6 (Version None)
Quarter: 2009Q4

REPORT INFORMATION
  Report Type: 
  Country: None (occurrence: None)
  Receive Date: 20091117
  Receipt Date: 20091113
  Transmission Date: 20100525
  Serious: Yes (Hospitalization, Other)
  Sender: FDA-Public Use
  Company Number: US-B.I. PHARMACEUTICALS,INC./RIDGEFIELD-2009-BP-13246BP

PATIENT
  Age: 69 Year
  Sex: Male

DRUGS (1)
  1. MICARDIS [Suspect]
     Indication: HYPERTENSION
     Dosage: 40 MG
     Route: 048
     Dates: start: 20050101

REACTIONS (5)
  - DYSPNOEA [None]
  - MYALGIA [None]
  - OEDEMA PERIPHERAL [None]
  - ORGANISING PNEUMONIA [None]
  - PLEURAL ADHESION [None]
